FAERS Safety Report 6578297-1 (Version None)
Quarter: 2010Q1

REPORT INFORMATION
  Report Type: 
  Country: None (occurrence: None)
  Receive Date: 20100211
  Receipt Date: 20100202
  Transmission Date: 20100710
  Serious: Yes (Death)
  Sender: FDA-Public Use
  Company Number: B0631797A

PATIENT
  Age: 80 Year
  Sex: Male

DRUGS (2)
  1. ARIXTRA [Suspect]
     Indication: MYOCARDIAL INFARCTION
     Dosage: 2.5MG PER DAY
     Route: 042
     Dates: start: 20100101
  2. ENOXAPARIN SODIUM [Concomitant]
     Route: 065

REACTIONS (1)
  - UPPER GASTROINTESTINAL HAEMORRHAGE [None]
